FAERS Safety Report 18700827 (Version 1)
Quarter: 2021Q1

REPORT INFORMATION
  Report Type: Report from Study
  Country: BR (occurrence: BR)
  Receive Date: 20210105
  Receipt Date: 20210105
  Transmission Date: 20210419
  Serious: Yes (Other)
  Sender: FDA-Public Use
  Company Number: NVSC2020BR343123

PATIENT
  Sex: Male

DRUGS (1)
  1. COSENTYX [Suspect]
     Active Substance: SECUKINUMAB
     Indication: PSORIATIC ARTHROPATHY
     Dosage: 300 MG
     Route: 065
     Dates: start: 20190802

REACTIONS (9)
  - Nervousness [Unknown]
  - Mass [Unknown]
  - Prostate cancer [Unknown]
  - Stress [Unknown]
  - Pruritus [Unknown]
  - Anxiety [Unknown]
  - Fungal infection [Unknown]
  - Scab [Unknown]
  - Product dose omission issue [Unknown]
